FAERS Safety Report 12613215 (Version 1)
Quarter: 2016Q3

REPORT INFORMATION
  Report Type: Spontaneous
  Country: BR (occurrence: BR)
  Receive Date: 20160802
  Receipt Date: 20160802
  Transmission Date: 20161109
  Serious: Yes (Hospitalization)
  Sender: FDA-Public Use
  Company Number: BR-ACCORD-042854

PATIENT
  Age: 58 Year
  Sex: Female

DRUGS (1)
  1. METHOTREXATE. [Suspect]
     Active Substance: METHOTREXATE
     Indication: PSORIASIS
     Dosage: PRESCRIBED ORALLY 10 MG WEEKLY
     Route: 048

REACTIONS (3)
  - Medication error [Unknown]
  - Toxicity to various agents [Unknown]
  - Mouth ulceration [Recovered/Resolved]
